FAERS Safety Report 7035532 (Version 12)
Quarter: 2013Q1

REPORT INFORMATION
  Report Type: Report from Study
  Country: JP (occurrence: JP)
  Receive Date: 20090629
  Receipt Date: 20130219
  Transmission Date: 20140127
  Serious: Yes (Hospitalization, Other)
  Sender: FDA-Public Use
  Company Number: PHHY2009JP12452

PATIENT
  Age: 74 Year
  Sex: Female

DRUGS (22)
  1. AMN107 [Suspect]
     Indication: CHRONIC MYELOID LEUKAEMIA
     Dosage: 200 MG, DAILY
     Route: 048
     Dates: start: 20090220, end: 20090305
  2. AMN107 [Suspect]
     Dosage: 400 MG, DAILY
     Route: 048
     Dates: start: 20090306, end: 20090311
  3. AMN107 [Suspect]
     Dosage: 200 MG, DAILY
     Route: 048
     Dates: start: 20090312, end: 20090507
  4. AMN107 [Suspect]
     Dosage: 200 MG, DAILY
     Route: 048
     Dates: start: 20090508, end: 20090722
  5. AMN107 [Suspect]
     Dosage: 200 MG, PER DAY
     Route: 048
     Dates: start: 20090723, end: 20091009
  6. AMN107 [Suspect]
     Dosage: 200 MG, FIVE TIMES A WEEK
     Route: 048
     Dates: start: 20091010, end: 20091211
  7. AMN107 [Suspect]
     Dosage: 200 MG, THREE TIMES A WEEK
     Route: 048
     Dates: start: 20091212, end: 20100127
  8. AMN107 [Suspect]
     Dosage: 200 MG FIVE TIMES A WEEK
     Route: 048
     Dates: start: 20100128
  9. AMN107 [Suspect]
     Dosage: 200 MG DAILY THREE TIMES A WEEK
     Route: 048
     Dates: start: 20100723
  10. AMN107 [Suspect]
     Dosage: 200 MG DAILY FIVE TIMES A WEEK
     Route: 048
     Dates: start: 20101124, end: 20110319
  11. AMN107 [Suspect]
     Dosage: 200 MG DAILY FIVE TIMES A WEEK
     Route: 048
     Dates: start: 20110509, end: 20110731
  12. AMN107 [Suspect]
     Dosage: 200 MG DAILY FIVE TIMES A WEEK
     Route: 048
     Dates: start: 20110801, end: 20111023
  13. AMN107 [Suspect]
     Dosage: 200 MG DAILY FIVE TIMES A WEEK
     Route: 048
     Dates: start: 20111024
  14. BLOOD TRANSFUSION, AUXILIARY PRODUCTS [Concomitant]
  15. CRAVIT [Concomitant]
     Route: 048
     Dates: start: 20090220, end: 20090402
  16. MYSLEE [Concomitant]
     Dates: start: 20090220, end: 20090402
  17. DIFLUCAN [Concomitant]
     Route: 048
     Dates: start: 20090220, end: 20090326
  18. LUPRAC [Concomitant]
     Route: 048
     Dates: start: 20090220, end: 20090318
  19. ALDACTONE-A [Concomitant]
     Route: 048
     Dates: start: 20090220, end: 20090318
  20. BROTIZOLAM [Concomitant]
     Dosage: 0.25 MG, UNK
     Route: 048
     Dates: start: 20090403
  21. RED BLOOD CELLS, CONCENTRATED [Concomitant]
     Dosage: 2 U, UNK
     Dates: start: 20090610
  22. PLATELETS, HUMAN BLOOD [Concomitant]
     Dosage: 10 U, UNK
     Dates: start: 20090610, end: 20091225

REACTIONS (10)
  - Subdural haematoma [Recovered/Resolved]
  - Platelet count decreased [Not Recovered/Not Resolved]
  - Anaemia [Not Recovered/Not Resolved]
  - Malaise [Recovering/Resolving]
  - Rash pruritic [Recovered/Resolved]
  - Blood bilirubin increased [Recovering/Resolving]
  - Purpura [Not Recovered/Not Resolved]
  - Pruritus [Recovering/Resolving]
  - Monocyte percentage increased [Unknown]
  - Blood glucose increased [Recovering/Resolving]
